FAERS Safety Report 15416422 (Version 1)
Quarter: 2018Q3

REPORT INFORMATION
  Report Type: Spontaneous
  Country: US (occurrence: US)
  Receive Date: 20180924
  Receipt Date: 20180924
  Transmission Date: 20181010
  Serious: Yes (Life-Threatening, Other)
  Sender: FDA-Public Use
  Company Number: PHHY2018US103852

PATIENT
  Age: 65 Year
  Sex: Female

DRUGS (11)
  1. ANTITHYMOCYTE IMMUNOGLOBULIN [Suspect]
     Active Substance: THYMOCYTE IMMUNE GLOBULIN NOS
     Indication: RENAL TRANSPLANT
     Dosage: 1.5 MG/KG, UNK
     Route: 065
  2. GANCICLOVIR. [Concomitant]
     Active Substance: GANCICLOVIR
     Indication: INFECTION PROPHYLAXIS
     Dosage: 5 MG/KG, UNK
     Route: 042
  3. GANCICLOVIR. [Concomitant]
     Active Substance: GANCICLOVIR
     Dosage: 900 MG, QD
     Route: 048
  4. SULFAMETHOXAZOLE [Concomitant]
     Active Substance: SULFAMETHOXAZOLE
     Indication: INFECTION PROPHYLAXIS
     Dosage: 1 DF, QW2
     Route: 065
  5. TACROLIMUS. [Suspect]
     Active Substance: TACROLIMUS
     Indication: RENAL TRANSPLANT
     Route: 065
  6. AMIODARONE [Concomitant]
     Active Substance: AMIODARONE
     Indication: ATRIAL FIBRILLATION
     Route: 065
  7. MYCOPHENOLATE MOFETIL. [Suspect]
     Active Substance: MYCOPHENOLATE MOFETIL
     Indication: IMMUNOSUPPRESSANT DRUG THERAPY
     Dosage: 500 MG, BID
     Route: 065
  8. TACROLIMUS. [Suspect]
     Active Substance: TACROLIMUS
     Indication: IMMUNOSUPPRESSANT DRUG THERAPY
  9. ANTITHYMOCYTE IMMUNOGLOBULIN [Suspect]
     Active Substance: THYMOCYTE IMMUNE GLOBULIN NOS
     Indication: IMMUNOSUPPRESSANT DRUG THERAPY
  10. MYCOPHENOLATE MOFETIL. [Suspect]
     Active Substance: MYCOPHENOLATE MOFETIL
     Indication: RENAL TRANSPLANT
     Dosage: 2 G, QD
     Route: 065
  11. GANCICLOVIR. [Concomitant]
     Active Substance: GANCICLOVIR
     Dosage: 10 MG/KG, UNK
     Route: 065

REACTIONS (10)
  - Respiratory distress [Recovered/Resolved]
  - Pneumonia [Recovered/Resolved]
  - Influenza [Recovered/Resolved]
  - Malaise [Recovered/Resolved]
  - Diarrhoea [Recovered/Resolved]
  - Complications of transplanted kidney [Recovered/Resolved]
  - Pyrexia [Recovered/Resolved]
  - Cough [Recovered/Resolved]
  - Cytomegalovirus infection [Recovered/Resolved]
  - Acute kidney injury [Recovered/Resolved]
